FAERS Safety Report 13734210 (Version 2)
Quarter: 2017Q3

REPORT INFORMATION
  Report Type: Report from Study
  Country: None (occurrence: CZ)
  Receive Date: 20170708
  Receipt Date: 20170717
  Transmission Date: 20171127
  Serious: Yes (Other)
  Sender: FDA-Public Use
  Company Number: CZ-ABBVIE-17K-217-2010486-00

PATIENT
  Sex: Female

DRUGS (1)
  1. DUODOPA [Suspect]
     Active Substance: CARBIDOPA\LEVODOPA
     Indication: PRODUCT USED FOR UNKNOWN INDICATION
     Route: 050
     Dates: end: 2015

REACTIONS (4)
  - Cerebrovascular accident [Unknown]
  - Mobility decreased [Unknown]
  - Muscle rigidity [Unknown]
  - Joint range of motion decreased [Unknown]
